FAERS Safety Report 4842354-8 (Version None)
Quarter: 2005Q4

REPORT INFORMATION
  Report Type: 
  Country: None (occurrence: None)
  Receive Date: 20051125
  Receipt Date: 20051115
  Transmission Date: 20060501
  Serious: Yes (Life-Threatening, Hospitalization)
  Sender: FDA-Public Use
  Company Number: 2005P1000433

PATIENT
  Age: 84 Year
  Sex: Male
  Weight: 80 kg

DRUGS (13)
  1. RETEPLASE (RETEPLASE) [Suspect]
     Indication: ACUTE MYOCARDIAL INFARCTION
     Dosage: IV
     Route: 042
     Dates: start: 20050909, end: 20050909
  2. ABCIXIMAB (ABCIXIMAB) [Suspect]
     Dosage: IV
     Route: 042
     Dates: start: 20050908
  3. CARVEDILOL [Concomitant]
  4. PERINDOPRIL [Concomitant]
  5. ATORVASTATIN CALCIUM [Concomitant]
  6. INSULIN [Concomitant]
  7. RANITIDINE [Concomitant]
  8. CLOPIDOGREL [Concomitant]
  9. ASPIRIN [Concomitant]
  10. HEPARIN [Concomitant]
  11. RAMIPRIL [Concomitant]
  12. BISOPROLOL [Concomitant]
  13. GLICLAZIDE [Concomitant]

REACTIONS (9)
  - ANGINA PECTORIS [None]
  - ANGINA UNSTABLE [None]
  - BLOOD CREATINE PHOSPHOKINASE MB INCREASED [None]
  - BLOOD GLUCOSE INCREASED [None]
  - CARDIAC ARREST [None]
  - CARDIAC PROCEDURE COMPLICATION [None]
  - CORONARY ARTERY STENOSIS [None]
  - ISCHAEMIA [None]
  - VENTRICULAR FIBRILLATION [None]
